FAERS Safety Report 16372530 (Version 1)
Quarter: 2019Q2

REPORT INFORMATION
  Report Type: Report from Study
  Country: US (occurrence: US)
  Receive Date: 20190530
  Receipt Date: 20190530
  Transmission Date: 20190711
  Serious: Yes (Other)
  Sender: FDA-Public Use
  Company Number: US-AMGEN-USASL2019082340

PATIENT
  Age: 72 Year
  Sex: Female

DRUGS (4)
  1. PLAQUENIL [HYDROXYCHLOROQUINE PHOSPHATE] [Concomitant]
     Active Substance: HYDROXYCHLOROQUINE DIPHOSPHATE
     Indication: SYSTEMIC LUPUS ERYTHEMATOSUS
     Dosage: 200 MILLIGRAM
  2. NADOLOL. [Concomitant]
     Active Substance: NADOLOL
     Indication: ARRHYTHMIA
     Dosage: 20 MILLIGRAM
  3. PROLIA [Suspect]
     Active Substance: DENOSUMAB
     Indication: OSTEOPOROSIS POSTMENOPAUSAL
     Dosage: UNK
     Route: 065
  4. EXEMESTANE. [Concomitant]
     Active Substance: EXEMESTANE
     Dosage: 25 MILLIGRAM
     Dates: start: 2015

REACTIONS (1)
  - Exostosis of jaw [Unknown]
